FAERS Safety Report 7560181-8 (Version None)
Quarter: 2011Q2

REPORT INFORMATION
  Report Type: 
  Country: None (occurrence: None)
  Receive Date: 20110621
  Receipt Date: 20110603
  Transmission Date: 20111010
  Serious: Yes (Congenital Anomaly)
  Sender: FDA-Public Use
  Company Number: A0931910A

PATIENT
  Sex: Male

DRUGS (4)
  1. WELLBUTRIN [Concomitant]
     Indication: BIPOLAR DISORDER
     Route: 064
  2. PAXIL [Suspect]
     Indication: BIPOLAR DISORDER
     Route: 064
  3. RISPERDAL [Concomitant]
     Indication: BIPOLAR DISORDER
     Route: 064
  4. TRAZODONE HCL [Concomitant]
     Indication: BIPOLAR DISORDER
     Route: 064

REACTIONS (3)
  - TALIPES [None]
  - HYDRONEPHROSIS [None]
  - DRUG EXPOSURE DURING PREGNANCY [None]
